FAERS Safety Report 25797411 (Version 2)
Quarter: 2025Q4

REPORT INFORMATION
  Report Type: Report from Study
  Country: US (occurrence: US)
  Receive Date: 20250912
  Receipt Date: 20251009
  Transmission Date: 20260117
  Serious: Yes (Other)
  Sender: ELI LILLY AND COMPANY
  Company Number: US-ELI_LILLY_AND_COMPANY-US202507009951

PATIENT
  Age: 80 Year
  Sex: Female
  Weight: 73.9 kg

DRUGS (9)
  1. KISUNLA [Suspect]
     Active Substance: DONANEMAB-AZBT
     Indication: Memory impairment
     Dosage: UNK, OTHER (EVERY 4 WEEKS)
     Route: 065
     Dates: start: 20250512
  2. KISUNLA [Suspect]
     Active Substance: DONANEMAB-AZBT
     Indication: Dementia Alzheimer^s type
     Dosage: UNK, OTHER (EVERY 4 WEEKS)
     Route: 065
     Dates: start: 20250702
  3. KISUNLA [Suspect]
     Active Substance: DONANEMAB-AZBT
     Dosage: UNK, OTHER (EVERY 4 WEEKS)
     Route: 065
  4. BENADRYL [Concomitant]
     Active Substance: DIPHENHYDRAMINE HYDROCHLORIDE
     Indication: Premedication
     Dosage: 50 MG, SLOW TO 1 HR
     Route: 065
     Dates: start: 20250702
  5. BENADRYL [Concomitant]
     Active Substance: DIPHENHYDRAMINE HYDROCHLORIDE
     Dosage: 50 MG, SLOW TO 1 HR
     Route: 065
  6. SOLU-MEDROL [Concomitant]
     Active Substance: METHYLPREDNISOLONE SODIUM SUCCINATE
     Indication: Premedication
     Dosage: 250 MG, UNKNOWN, SLOW TO 1 HR
     Route: 065
     Dates: start: 20250702
  7. SOLU-MEDROL [Concomitant]
     Active Substance: METHYLPREDNISOLONE SODIUM SUCCINATE
     Dosage: 250 MG, UNKNOWN, SLOW TO 1 HR
     Route: 065
  8. TYLENOL [Concomitant]
     Active Substance: ACETAMINOPHEN
     Indication: Premedication
     Dosage: 650 MG, UNKNOWN, SLOW TO 1 HR
     Route: 065
     Dates: start: 20250702
  9. TYLENOL [Concomitant]
     Active Substance: ACETAMINOPHEN
     Dosage: 650 MG, UNKNOWN, SLOW TO 1 HR
     Route: 065

REACTIONS (3)
  - Blood pressure increased [Recovered/Resolved]
  - Infusion related reaction [Recovered/Resolved]
  - Drug ineffective [Unknown]

NARRATIVE: CASE EVENT DATE: 20250702
